FAERS Safety Report 13860146 (Version 1)
Quarter: 2017Q3

REPORT INFORMATION
  Report Type: Report from Study
  Country: None (occurrence: BR)
  Receive Date: 20170811
  Receipt Date: 20170811
  Transmission Date: 20171127
  Serious: Yes (Other)
  Sender: FDA-Public Use
  Company Number: BR-ABBVIE-17K-020-2065728-00

PATIENT
  Sex: Female

DRUGS (1)
  1. HUMIRA [Suspect]
     Active Substance: ADALIMUMAB
     Indication: RHEUMATOID ARTHRITIS
     Route: 058
     Dates: start: 20051005, end: 2017

REACTIONS (5)
  - Noninfective gingivitis [Unknown]
  - Dental restoration failure [Unknown]
  - Endodontic procedure [Unknown]
  - Tooth fracture [Unknown]
  - Gingival pain [Unknown]
